FAERS Safety Report 25877870 (Version 1)
Quarter: 2025Q4

REPORT INFORMATION
  Report Type: Other
  Country: CA (occurrence: CA)
  Receive Date: 20251003
  Receipt Date: 20251003
  Transmission Date: 20260118
  Serious: Yes (Hospitalization, Other)
  Sender: APOTEX
  Company Number: CA-PGRTD-001149179

PATIENT
  Age: 35 Year
  Sex: Female
  Weight: 74 kg

DRUGS (5)
  1. PREGABALIN [Suspect]
     Active Substance: PREGABALIN
     Indication: Product used for unknown indication
     Route: 048
  2. ALPRAZOLAM [Concomitant]
     Active Substance: ALPRAZOLAM
     Route: 065
  3. VENLAFAXINE HYDROCHLORIDE [Concomitant]
     Active Substance: VENLAFAXINE HYDROCHLORIDE
  4. QUETIAPINE [Concomitant]
     Active Substance: QUETIAPINE
     Route: 065
  5. PANTOPRAZOLE SODIUM [Concomitant]
     Active Substance: PANTOPRAZOLE SODIUM
     Route: 048

REACTIONS (10)
  - Hot flush [Recovered/Resolved]
  - Sleep paralysis [Recovered/Resolved]
  - Anxiety [Recovered/Resolved]
  - Drug withdrawal syndrome [Recovered/Resolved]
  - Drug dependence [Recovered/Resolved]
  - Insomnia [Recovered/Resolved]
  - Sedation [Recovered/Resolved]
  - Feeling abnormal [Recovered/Resolved]
  - Urinary retention [Recovered/Resolved]
  - Constipation [Recovered/Resolved]
